FAERS Safety Report 4269591-8 (Version None)
Quarter: 2004Q1

REPORT INFORMATION
  Report Type: 
  Country: None (occurrence: None)
  Receive Date: 20040112
  Receipt Date: 20031226
  Transmission Date: 20041129
  Serious: Yes (Hospitalization)
  Sender: FDA-Public Use
  Company Number: 200323098GDDC

PATIENT
  Sex: Male

DRUGS (6)
  1. INDAPAMIDE [Suspect]
     Indication: HYPERTENSION
     Dosage: 1.5 MG/DAY PO
     Route: 048
     Dates: end: 20030630
  2. LEVOTHYROXINE SODIUM (THYROXIN) [Concomitant]
  3. AMIODARONE HCL [Concomitant]
  4. ALLOPURINOL [Concomitant]
  5. IRBESARTAN [Concomitant]
  6. WARFARIN SODIUM [Concomitant]

REACTIONS (5)
  - ANOREXIA [None]
  - HYPONATRAEMIA [None]
  - LOSS OF CONSCIOUSNESS [None]
  - NAUSEA [None]
  - VOMITING [None]
